FAERS Safety Report 11024433 (Version 1)
Quarter: 2015Q2

REPORT INFORMATION
  Report Type: Spontaneous
  Country: US (occurrence: US)
  Receive Date: 20150414
  Receipt Date: 20150414
  Transmission Date: 20150821
  Serious: Yes (Hospitalization, Other)
  Sender: FDA-Public Use
  Company Number: US-BRISTOL-MYERS SQUIBB COMPANY-BMS-2015-021757

PATIENT
  Age: 69 Year
  Sex: Female
  Weight: 82 kg

DRUGS (2)
  1. COUMADIN [Suspect]
     Active Substance: WARFARIN SODIUM
     Indication: ATRIAL FIBRILLATION
  2. COUMADIN [Suspect]
     Active Substance: WARFARIN SODIUM
     Indication: CEREBROVASCULAR ACCIDENT PROPHYLAXIS
     Dosage: 1 DF, QD:
     Route: 048

REACTIONS (3)
  - Haemoglobin decreased [Unknown]
  - Haematoma [Unknown]
  - Haemorrhage [Recovering/Resolving]

NARRATIVE: CASE EVENT DATE: 20150309
